FAERS Safety Report 7166512-5 (Version None)
Quarter: 2010Q4

REPORT INFORMATION
  Report Type: 
  Country: None (occurrence: None)
  Receive Date: 20101216
  Receipt Date: 20101203
  Transmission Date: 20110411
  Serious: Yes (Hospitalization)
  Sender: FDA-Public Use
  Company Number: DK-CELGENEUS-044-21880-10111598

PATIENT
  Sex: Female
  Weight: 79 kg

DRUGS (8)
  1. REVLIMID [Suspect]
     Indication: MULTIPLE MYELOMA
     Route: 048
     Dates: start: 20101025, end: 20101029
  2. DEXAMETHASONE [Suspect]
     Indication: MULTIPLE MYELOMA
     Route: 048
  3. ASPIRIN [Concomitant]
     Indication: THROMBOSIS PROPHYLAXIS
     Route: 048
     Dates: start: 20101025
  4. GABAPENTIN [Concomitant]
     Route: 048
     Dates: start: 20100902
  5. NORTRIPTYLINE HCL [Concomitant]
     Route: 048
     Dates: start: 20100927
  6. AMITRIPTILINA [Concomitant]
     Indication: DEPRESSION
     Route: 048
     Dates: start: 20100727
  7. PARACETAMOL [Concomitant]
     Route: 048
     Dates: start: 20100319
  8. PAMIDRONATE DISODIUM [Concomitant]
     Indication: HYPERCALCAEMIA
     Route: 051
     Dates: start: 20100315

REACTIONS (2)
  - MENINGITIS [None]
  - PNEUMOCOCCAL SEPSIS [None]
